FAERS Safety Report 8937422 (Version 1)
Quarter: 2012Q4

REPORT INFORMATION
  Report Type: 
  Country: JP (occurrence: JP)
  Receive Date: 20121130
  Receipt Date: 20121130
  Transmission Date: 20130627
  Serious: Yes (Other)
  Sender: FDA-Public Use
  Company Number: JP-009507513-1211JPN011384

PATIENT
  Age: 57 Year
  Sex: Male
  Weight: 82 kg

DRUGS (9)
  1. PEGINTRON [Suspect]
     Indication: CHRONIC HEPATITIS C
     Dosage: 1.2 Microgram per kilogram, qw
     Route: 058
     Dates: start: 20120907, end: 20121005
  2. REBETOL [Suspect]
     Indication: CHRONIC HEPATITIS C
     Dosage: 1000 mg, qd
     Route: 048
     Dates: start: 20120907, end: 20121012
  3. TELAVIC [Suspect]
     Indication: CHRONIC HEPATITIS C
     Dosage: 2250 mg, qd
     Route: 048
     Dates: start: 20120907, end: 20120909
  4. TELAVIC [Suspect]
     Dosage: 1500 mg, qd
     Route: 048
     Dates: start: 20120910, end: 20121012
  5. METGLUCO [Concomitant]
     Indication: DIABETES MELLITUS
     Dosage: 750 mg, qd, POR
     Route: 048
  6. BASEN [Concomitant]
     Indication: DIABETES MELLITUS
     Dosage: .6 mg, qd,POR
     Route: 048
  7. JANUVIA TABLETS 50MG [Concomitant]
     Indication: DIABETES MELLITUS
     Dosage: 50 mg, qd
     Route: 048
  8. PARIET [Concomitant]
     Indication: GASTRITIS
     Dosage: 10 mg, qd,POR
     Route: 048
  9. RIBALL [Concomitant]
     Indication: HYPERURICAEMIA
     Dosage: 300 mg, qd,POR
     Route: 048

REACTIONS (2)
  - Neutropenia [Recovered/Resolved]
  - Leukopenia [Recovered/Resolved]
